FAERS Safety Report 14658387 (Version 2)
Quarter: 2018Q2

REPORT INFORMATION
  Report Type: Report from Study
  Country: CO (occurrence: CO)
  Receive Date: 20180320
  Receipt Date: 20180403
  Transmission Date: 20180711
  Serious: Yes (Other)
  Sender: FDA-Public Use
  Company Number: PHHY2018CO047237

PATIENT
  Age: 31 Year
  Sex: Male
  Weight: 80 kg

DRUGS (1)
  1. TASIGNA [Suspect]
     Active Substance: NILOTINIB
     Indication: CHRONIC MYELOID LEUKAEMIA
     Dosage: 600 MG, QD
     Route: 048
     Dates: start: 20170302

REACTIONS (7)
  - Splenomegaly [Unknown]
  - Fatigue [Unknown]
  - Asthenia [Unknown]
  - Agitation [Not Recovered/Not Resolved]
  - Hepatomegaly [Unknown]
  - Abdominal mass [Unknown]
  - Dizziness [Unknown]

NARRATIVE: CASE EVENT DATE: 20170701
